FAERS Safety Report 5143417-2 (Version None)
Quarter: 2006Q4

REPORT INFORMATION
  Report Type: 
  Country: None (occurrence: None)
  Receive Date: 20061030
  Receipt Date: 20061013
  Transmission Date: 20070319
  Serious: Yes (Hospitalization)
  Sender: FDA-Public Use
  Company Number: 2006127333

PATIENT
  Age: 44 Year
  Sex: Male
  Weight: 88 kg

DRUGS (9)
  1. METRONIDAZOLE [Suspect]
     Dosage: (500 MG, 2 IN 1 D), OTHER
     Dates: start: 20060617, end: 20060705
  2. CYTARABINE [Suspect]
     Dosage: (400 MG, DAILY), INTRAVENOUS
     Route: 042
     Dates: start: 20060609, end: 20060716
  3. AMBISOME [Suspect]
     Dosage: (250 MG, 1 IN 1 D), INTRAVENOUS
     Route: 042
     Dates: start: 20060613, end: 20060617
  4. CIPROFLOXACIN [Concomitant]
  5. DAUNORUBICIN HCL [Concomitant]
  6. ACYCLOVIR [Concomitant]
  7. CASPOFUNGIN ACETATE (CASPOFUNGIN ACETATE) [Concomitant]
  8. ALLOPURINOL [Concomitant]
  9. FLUCONAZOLE [Concomitant]

REACTIONS (13)
  - BONE MARROW FAILURE [None]
  - CHOLELITHIASIS [None]
  - CHOLESTASIS [None]
  - CYTOLYTIC HEPATITIS [None]
  - DIARRHOEA [None]
  - DRUG TOXICITY [None]
  - FUNGAL INFECTION [None]
  - HEPATOSPLENOMEGALY [None]
  - HYPERSENSITIVITY [None]
  - HYPERTHERMIA [None]
  - IMMUNE SYSTEM DISORDER [None]
  - LUNG DISORDER [None]
  - TONGUE DISORDER [None]
